FAERS Safety Report 11466081 (Version 1)
Quarter: 2015Q3

REPORT INFORMATION
  Report Type: Spontaneous
  Country: AR (occurrence: AR)
  Receive Date: 20150907
  Receipt Date: 20150907
  Transmission Date: 20151125
  Serious: Yes (Other)
  Sender: FDA-Public Use
  Company Number: AR-BAYER-2015-400261

PATIENT
  Age: 78 Year
  Sex: Female

DRUGS (3)
  1. ACTRON FEM [Suspect]
     Active Substance: IBUPROFEN
     Indication: PAIN
  2. ACTRON FEM [Suspect]
     Active Substance: IBUPROFEN
     Indication: OSTEOARTHRITIS
     Dosage: 1 DF, BID
  3. TAFIROL [PARACETAMOL] [Concomitant]
     Indication: ARTHRALGIA
     Dosage: UNK

REACTIONS (1)
  - Postmenopausal haemorrhage [Recovering/Resolving]

NARRATIVE: CASE EVENT DATE: 201506
